FAERS Safety Report 10628680 (Version 1)
Quarter: 2014Q4

REPORT INFORMATION
  Report Type: Spontaneous
  Country: US (occurrence: US)
  Receive Date: 20141205
  Receipt Date: 20141205
  Transmission Date: 20150529
  Serious: No
  Sender: FDA-Public Use
  Company Number: US-BRISTOL-MYERS SQUIBB COMPANY-21550611

PATIENT
  Age: 65 Year
  Sex: Male

DRUGS (3)
  1. ABILIFY [Suspect]
     Active Substance: ARIPIPRAZOLE
     Indication: HALLUCINATION
     Route: 048
     Dates: start: 2008, end: 2014
  2. KLONOPIN [Concomitant]
     Active Substance: CLONAZEPAM
  3. RAMELTEON [Concomitant]
     Active Substance: RAMELTEON

REACTIONS (2)
  - Off label use [Unknown]
  - Tremor [Recovered/Resolved]

NARRATIVE: CASE EVENT DATE: 20140929
